FAERS Safety Report 9978822 (Version 1)
Quarter: 2014Q1

REPORT INFORMATION
  Report Type: Report from Study
  Country: US (occurrence: US)
  Receive Date: 20140306
  Receipt Date: 20140306
  Transmission Date: 20141002
  Serious: No
  Sender: FDA-Public Use
  Company Number: US-ABBVIE-13P-163-1168982-00

PATIENT
  Age: 39 Year
  Sex: Female

DRUGS (1)
  1. HUMIRA [Suspect]
     Indication: PSORIASIS
     Route: 058
     Dates: start: 20130402, end: 201310

REACTIONS (4)
  - Swelling face [Recovering/Resolving]
  - Hordeolum [Recovered/Resolved]
  - Hordeolum [Recovering/Resolving]
  - Hordeolum [Recovering/Resolving]
